FAERS Safety Report 8002012-8 (Version None)
Quarter: 2011Q4

REPORT INFORMATION
  Report Type: 
  Country: None (occurrence: None)
  Receive Date: 20111220
  Receipt Date: 20111205
  Transmission Date: 20120403
  Serious: Yes (Death)
  Sender: FDA-Public Use
  Company Number: UTC-013125

PATIENT
  Age: 49 Year
  Sex: Female

DRUGS (3)
  1. TYVASO [Suspect]
     Indication: COR PULMONALE CHRONIC
     Dosage: 6-54 MICROGRAMS (4 IN 1 D), INHALATION
     Route: 055
     Dates: start: 20110217
  2. DIURETICS (DIURETICS) [Concomitant]
  3. REVATIO [Concomitant]

REACTIONS (1)
  - DEATH [None]
